FAERS Safety Report 10967674 (Version 1)
Quarter: 2015Q1

REPORT INFORMATION
  Report Type: Spontaneous
  Country: US (occurrence: US)
  Receive Date: 20150330
  Receipt Date: 20150330
  Transmission Date: 20150721
  Serious: No
  Sender: FDA-Public Use
  Company Number: US-ASTRAZENECA-2014SE22666

PATIENT
  Age: 68 Year
  Sex: Male
  Weight: 112.9 kg

DRUGS (4)
  1. NEXIUM [Suspect]
     Active Substance: ESOMEPRAZOLE MAGNESIUM
     Indication: GASTROOESOPHAGEAL REFLUX DISEASE
     Route: 048
  2. NEXIUM [Suspect]
     Active Substance: ESOMEPRAZOLE MAGNESIUM
     Indication: ABDOMINAL DISCOMFORT
     Route: 048
  3. COQ10 [Concomitant]
     Active Substance: UBIDECARENONE
     Dosage: DAILY
     Route: 048
  4. GLUCOSAMINE CHONDRITIN [Concomitant]
     Dosage: DAILY
     Route: 048

REACTIONS (1)
  - Tooth loss [Recovering/Resolving]
